FAERS Safety Report 25206174 (Version 1)
Quarter: 2025Q2

REPORT INFORMATION
  Report Type: Spontaneous
  Country: CN (occurrence: CN)
  Receive Date: 20250417
  Receipt Date: 20250417
  Transmission Date: 20250717
  Serious: Yes (Other)
  Sender: EISAI
  Company Number: CN-Eisai-EC-2025-187181

PATIENT
  Age: 34 Year
  Sex: Female
  Weight: 55 kg

DRUGS (2)
  1. ERIBULIN [Suspect]
     Active Substance: ERIBULIN
     Indication: Leiomyosarcoma metastatic
     Dates: start: 20250312
  2. CATEQUENTINIB [Suspect]
     Active Substance: CATEQUENTINIB
     Indication: Leiomyosarcoma metastatic
     Dates: start: 20250311

REACTIONS (1)
  - White blood cell count decreased [Recovering/Resolving]

NARRATIVE: CASE EVENT DATE: 20250315
